FAERS Safety Report 4846149-0 (Version None)
Quarter: 2005Q4

REPORT INFORMATION
  Report Type: 
  Country: None (occurrence: None)
  Receive Date: 20051201
  Receipt Date: 20051118
  Transmission Date: 20060501
  Serious: Yes (Other)
  Sender: FDA-Public Use
  Company Number: 2005159245

PATIENT
  Age: 41 Year
  Sex: Female

DRUGS (5)
  1. NEURONTIN [Suspect]
     Indication: PAIN
     Dosage: 300 MG (100 MG, 3 IN 1 D), ORAL
     Route: 048
     Dates: start: 20040301
  2. SIBUTRAMINE HYDROCHLORIDE (SIBUTRAMINE HYDROCHLORIDE) [Concomitant]
  3. ETHINYL ESTRADIOL W/NORGESTREL (ETHINYLESTRADIOL, NORGESTREL) [Concomitant]
  4. AMITRIPTYLINE HCL [Concomitant]
  5. CYCLOBENZAPRINE HCL [Concomitant]

REACTIONS (3)
  - NERVOUS SYSTEM SURGERY [None]
  - PAIN [None]
  - SOMNOLENCE [None]
